FAERS Safety Report 11527667 (Version 1)
Quarter: 2015Q3

REPORT INFORMATION
  Report Type: Spontaneous
  Country: US (occurrence: US)
  Receive Date: 20150903
  Receipt Date: 20150903
  Transmission Date: 20151125
  Serious: No
  Sender: FDA-Public Use
  Company Number: US-ELI_LILLY_AND_COMPANY-US200905001366

PATIENT
  Age: 63 Year
  Sex: Female

DRUGS (2)
  1. HUMALOG [Suspect]
     Active Substance: INSULIN LISPRO
     Dosage: UNK, 3/D
     Dates: start: 200904, end: 20090503
  2. LANTUS [Concomitant]
     Active Substance: INSULIN GLARGINE

REACTIONS (7)
  - Nerve compression [Recovering/Resolving]
  - Blood potassium decreased [Unknown]
  - Myalgia [Recovering/Resolving]
  - Muscle spasms [Recovering/Resolving]
  - Insomnia [Recovering/Resolving]
  - Skin burning sensation [Recovered/Resolved]
  - Intervertebral disc protrusion [Recovering/Resolving]

NARRATIVE: CASE EVENT DATE: 200904
